FAERS Safety Report 9785997 (Version 2)
Quarter: 2014Q1

REPORT INFORMATION
  Report Type: Spontaneous
  Country: US (occurrence: US)
  Receive Date: 20131227
  Receipt Date: 20140115
  Transmission Date: 20141002
  Serious: Yes (Other)
  Sender: FDA-Public Use
  Company Number: US-PFIZER INC-2013367117

PATIENT
  Age: 68 Year
  Sex: 0

DRUGS (2)
  1. LIPITOR [Suspect]
     Dosage: 10 MG, OTHER DAY
  2. COQ 10 [Suspect]
     Dosage: 200 MG, UNK

REACTIONS (2)
  - Type 2 diabetes mellitus [Unknown]
  - Muscle spasms [Recovered/Resolved]
